FAERS Safety Report 5508109-6 (Version None)
Quarter: 2007Q4

REPORT INFORMATION
  Report Type: 
  Country: None (occurrence: None)
  Receive Date: 20071031
  Receipt Date: 20070713
  Transmission Date: 20080405
  Serious: No
  Sender: FDA-Public Use
  Company Number: 200610776BWH

PATIENT
  Age: 73 Year
  Sex: Male
  Weight: 115.6672 kg

DRUGS (1)
  1. NEXAVAR [Suspect]
     Indication: RENAL CELL CARCINOMA STAGE UNSPECIFIED
     Dosage: 400 MG, BID, ORAL
     Route: 048
     Dates: start: 20051201

REACTIONS (1)
  - HERPES ZOSTER [None]
